FAERS Safety Report 9099222 (Version 1)
Quarter: 2013Q1

REPORT INFORMATION
  Report Type: Spontaneous
  Country: US (occurrence: US)
  Receive Date: 20130214
  Receipt Date: 20130214
  Transmission Date: 20140127
  Serious: Yes (Other)
  Sender: FDA-Public Use
  Company Number: US-GLAXOSMITHKLINE-A1010798A

PATIENT
  Age: 49 Year
  Sex: Female

DRUGS (15)
  1. BENLYSTA [Suspect]
     Indication: SYSTEMIC LUPUS ERYTHEMATOSUS
     Route: 042
     Dates: start: 201104
  2. LOVENOX [Concomitant]
  3. CELLCEPT [Concomitant]
  4. PREDNISONE [Concomitant]
  5. LYRICA [Concomitant]
  6. CYMBALTA [Concomitant]
  7. K-DUR [Concomitant]
  8. SPIRONOLACTONE [Concomitant]
  9. FUROSEMIDE [Concomitant]
  10. DEXILANT [Concomitant]
  11. LORTAB [Concomitant]
  12. SYNTHROID [Concomitant]
  13. CALCIUM [Concomitant]
  14. VITAMIN D [Concomitant]
  15. MULTI VITAMIN [Concomitant]

REACTIONS (3)
  - Haemorrhage [Not Recovered/Not Resolved]
  - Eczema [Not Recovered/Not Resolved]
  - Drug administration error [Unknown]
